FAERS Safety Report 9475215 (Version 1)
Quarter: 2013Q3

REPORT INFORMATION
  Report Type: Spontaneous
  Country: US (occurrence: US)
  Receive Date: 20130825
  Receipt Date: 20130825
  Transmission Date: 20140515
  Serious: Yes (Hospitalization)
  Sender: FDA-Public Use
  Company Number: US-MYLANLABS-2013S1018293

PATIENT
  Age: 16 Year
  Sex: Female

DRUGS (4)
  1. RISPERIDONE [Suspect]
     Indication: MANIA
     Route: 030
  2. RISPERIDONE [Suspect]
     Indication: PSYCHOTIC BEHAVIOUR
     Route: 030
  3. RISPERIDONE [Suspect]
     Indication: MANIA
     Route: 048
  4. RISPERIDONE [Suspect]
     Indication: PSYCHOTIC BEHAVIOUR
     Route: 048

REACTIONS (2)
  - Hirsutism [Recovered/Resolved]
  - Galactorrhoea [Recovered/Resolved]
